FAERS Safety Report 15403855 (Version 1)
Quarter: 2018Q3

REPORT INFORMATION
  Report Type: Spontaneous
  Country: FR (occurrence: FR)
  Receive Date: 20180919
  Receipt Date: 20180919
  Transmission Date: 20181010
  Serious: Yes (Other)
  Sender: FDA-Public Use
  Company Number: FR-JNJFOC-20180920747

PATIENT
  Age: 76 Year
  Sex: Male

DRUGS (1)
  1. XARELTO [Suspect]
     Active Substance: RIVAROXABAN
     Indication: ANTICOAGULANT THERAPY
     Route: 048
     Dates: start: 2008

REACTIONS (11)
  - Urticaria [Unknown]
  - Constipation [Unknown]
  - Pallor [Unknown]
  - Faeces discoloured [Unknown]
  - Muscular weakness [Unknown]
  - Dry mouth [Unknown]
  - Oedema peripheral [Unknown]
  - Pain in extremity [Unknown]
  - Fatigue [Unknown]
  - Thirst [Unknown]
  - Vertigo [Unknown]

NARRATIVE: CASE EVENT DATE: 201808
